FAERS Safety Report 9966165 (Version 1)
Quarter: 2014Q1

REPORT INFORMATION
  Report Type: Spontaneous
  Country: US (occurrence: US)
  Receive Date: 20140305
  Receipt Date: 20140305
  Transmission Date: 20141002
  Serious: No
  Sender: FDA-Public Use
  Company Number: US-ABBVIE-13P-163-1120686-00

PATIENT
  Sex: Female

DRUGS (3)
  1. HUMIRA [Suspect]
     Indication: CROHN^S DISEASE
     Route: 058
     Dates: start: 201103, end: 2012
  2. HUMIRA [Suspect]
     Dates: start: 2012, end: 201302
  3. HUMIRA [Suspect]
     Dates: start: 20130603

REACTIONS (2)
  - Gestational diabetes [Recovered/Resolved]
  - Drug ineffective [Not Recovered/Not Resolved]
